FAERS Safety Report 6830639-5 (Version None)
Quarter: 2010Q3

REPORT INFORMATION
  Report Type: 
  Country: None (occurrence: None)
  Receive Date: 20100709
  Receipt Date: 20100709
  Transmission Date: 20110219
  Serious: No
  Sender: FDA-Public Use
  Company Number: None

PATIENT
  Age: 81 Year
  Sex: Female
  Weight: 58.9676 kg

DRUGS (1)
  1. NITROFURANTOIN MONOHYDRATE/MACROCRYSTALS [Suspect]
     Indication: CYSTITIS
     Dosage: 100MG 2 PER DAY
     Dates: start: 20100610, end: 20100611

REACTIONS (4)
  - DRY MOUTH [None]
  - JAW DISORDER [None]
  - SWELLING [None]
  - SWELLING FACE [None]
